FAERS Safety Report 4815637-5 (Version None)
Quarter: 2005Q4

REPORT INFORMATION
  Report Type: 
  Country: None (occurrence: None)
  Receive Date: 20051027
  Receipt Date: 20051020
  Transmission Date: 20060501
  Serious: Yes (Life-Threatening, Hospitalization)
  Sender: FDA-Public Use
  Company Number: 2005125858

PATIENT
  Age: 85 Year
  Sex: Male
  Weight: 85 kg

DRUGS (6)
  1. LYRICA [Suspect]
     Indication: POLYNEUROPATHY
     Dosage: ORAL
     Route: 048
     Dates: end: 20050801
  2. ATORVASTATIN CALCIUM [Concomitant]
  3. ISCOVER (CLOPIDOGREL SULFATE) [Concomitant]
  4. ACETYLSALICYLIC ACID SRT [Concomitant]
  5. RAMIPRIL [Concomitant]
  6. BELOC-ZOK MITE (METOPROLOL SUCCINATE) [Concomitant]

REACTIONS (2)
  - CARDIAC ARREST [None]
  - VENTRICULAR FIBRILLATION [None]
